FAERS Safety Report 6116344-1 (Version None)
Quarter: 2009Q1

REPORT INFORMATION
  Report Type: 
  Country: None (occurrence: None)
  Receive Date: 20090314
  Receipt Date: 20081208
  Transmission Date: 20090719
  Serious: No
  Sender: FDA-Public Use
  Company Number: US-ABBOTT-08P-163-0491912-00

PATIENT
  Sex: Female

DRUGS (4)
  1. HUMIRA [Suspect]
     Indication: RHEUMATOID ARTHRITIS
     Dates: start: 20040101
  2. HUMIRA [Suspect]
     Dates: start: 20020101, end: 20040101
  3. HUMIRA [Suspect]
     Dates: end: 20020101
  4. CORTICOSTEROIDS [Concomitant]
     Indication: DRUG USE FOR UNKNOWN INDICATION
     Dates: start: 20081112

REACTIONS (3)
  - ARTHROPATHY [None]
  - BLOOD DISORDER [None]
  - PAIN [None]
